FAERS Safety Report 5211564-2 (Version None)
Quarter: 2007Q1

REPORT INFORMATION
  Report Type: 
  Country: None (occurrence: None)
  Receive Date: 20070116
  Receipt Date: 20070116
  Transmission Date: 20070707
  Serious: Yes (Other)
  Sender: FDA-Public Use
  Company Number: None

PATIENT
  Age: 35 Year
  Sex: Female

DRUGS (1)
  1. RISPERDAL [Suspect]
     Indication: SCHIZOAFFECTIVE DISORDER
     Dosage: 2MG PO BID
     Route: 048
     Dates: start: 20060601, end: 20061201

REACTIONS (4)
  - AMENORRHOEA [None]
  - HYPERPROLACTINAEMIA [None]
  - PARKINSONISM [None]
  - WEIGHT INCREASED [None]
